FAERS Safety Report 5295665-9 (Version None)
Quarter: 2007Q2

REPORT INFORMATION
  Report Type: 
  Country: None (occurrence: None)
  Receive Date: 20070410
  Receipt Date: 20070410
  Transmission Date: 20071010
  Serious: Yes (Death)
  Sender: FDA-Public Use
  Company Number: None

PATIENT
  Sex: Male

DRUGS (1)
  1. ZYVOX [Suspect]
     Dosage: 600MG 1 TAB BID PO
     Route: 048

REACTIONS (2)
  - DYSPNOEA [None]
  - SWOLLEN TONGUE [None]
